FAERS Safety Report 8629109 (Version 2)
Quarter: 2014Q1

REPORT INFORMATION
  Report Type: Spontaneous
  Country: US (occurrence: None)
  Receive Date: 20120323
  Receipt Date: 20140306
  Transmission Date: 20141002
  Serious: Yes (Hospitalization, Other)
  Sender: FDA-Public Use
  Company Number: 163-21880-11062517

PATIENT
  Age: 53 Year
  Sex: Male

DRUGS (10)
  1. REVLIMID [Suspect]
     Indication: PLASMA CELL MYELOMA
     Dosage: 14 IN 21D
     Route: 048
     Dates: start: 20110601, end: 20110620
  2. AMLODIPINE (AMLODIPINE) [Concomitant]
  3. ASPIRIN (ACETYLSALICYLIC ACID) [Concomitant]
  4. DEXAMETHASONE (DEXAMETHASONE) [Concomitant]
  5. ALPHAGAN P [Concomitant]
  6. OXYCODONE/ACETAMINOPHEN [Concomitant]
  7. FENTANYL (FENTANYL) [Concomitant]
  8. BYSTOLIC (NEBIVOLOL HYDROCHLORIDE) [Concomitant]
  9. OXYCODONE HCL [Concomitant]
  10. LOVENOX [Concomitant]

REACTIONS (5)
  - Deep vein thrombosis [None]
  - Oedema peripheral [None]
  - Pulmonary embolism [None]
  - Deep vein thrombosis [None]
  - Local swelling [None]
